FAERS Safety Report 18863022 (Version 7)
Quarter: 2022Q2

REPORT INFORMATION
  Report Type: Report from Study
  Country: US (occurrence: US)
  Receive Date: 20210209
  Receipt Date: 20220615
  Transmission Date: 20220721
  Serious: Yes (Other)
  Sender: FDA-Public Use
  Company Number: NVSC2021US022796

PATIENT
  Sex: Female

DRUGS (1)
  1. ENTRESTO [Suspect]
     Active Substance: SACUBITRIL\VALSARTAN
     Indication: Cardiac failure
     Dosage: UNK
     Route: 048

REACTIONS (14)
  - Neoplasm malignant [Unknown]
  - Brain injury [Unknown]
  - Arthralgia [Unknown]
  - Tendonitis [Unknown]
  - Alopecia [Unknown]
  - Illness [Unknown]
  - Malaise [Unknown]
  - Oropharyngeal pain [Unknown]
  - Weight decreased [Unknown]
  - Blood potassium decreased [Unknown]
  - Fatigue [Unknown]
  - Headache [Unknown]
  - Cough [Recovering/Resolving]
  - Memory impairment [Unknown]
